FAERS Safety Report 11108851 (Version 2)
Quarter: 2015Q2

REPORT INFORMATION
  Report Type: Spontaneous
  Country: US (occurrence: US)
  Receive Date: 20150513
  Receipt Date: 20150521
  Transmission Date: 20150821
  Serious: Yes (Death, Other)
  Sender: FDA-Public Use
  Company Number: US-AMGEN-USASP2015045245

PATIENT
  Age: 62 Year
  Sex: Female

DRUGS (1)
  1. PROLIA [Suspect]
     Active Substance: DENOSUMAB
     Indication: OSTEOPOROSIS
     Dosage: UNK
     Route: 065

REACTIONS (8)
  - Pulmonary fibrosis [Fatal]
  - Arrhythmia [Unknown]
  - Cardiac failure [Fatal]
  - Hodgkin^s disease [Fatal]
  - Anuria [Fatal]
  - Depression [Fatal]
  - Cardiac failure congestive [Unknown]
  - Weight decreased [Fatal]

NARRATIVE: CASE EVENT DATE: 20150427
